FAERS Safety Report 5296523-6 (Version None)
Quarter: 2007Q2

REPORT INFORMATION
  Report Type: 
  Country: None (occurrence: None)
  Receive Date: 20070413
  Receipt Date: 20070411
  Transmission Date: 20071010
  Serious: Yes (Hospitalization, Other)
  Sender: FDA-Public Use
  Company Number: SE-BRISTOL-MYERS SQUIBB COMPANY-13716030

PATIENT
  Age: 80 Year
  Sex: Male

DRUGS (9)
  1. BLINDED: APIXABAN [Suspect]
     Dates: start: 20070111
  2. BLINDED: PLACEBO [Suspect]
     Dates: start: 20070111
  3. RAMIPRIL [Concomitant]
  4. AMLODIPINE [Concomitant]
  5. BISOPRODOL FUMARATE [Concomitant]
  6. ISOSORBIDE MONONITRATE [Concomitant]
  7. FUROSEMIDE [Concomitant]
  8. CLOPIDOGREL BISULFATE [Concomitant]
     Dates: start: 20060622
  9. ASPIRIN [Concomitant]
     Dates: start: 19961001

REACTIONS (4)
  - ATRIAL FIBRILLATION [None]
  - GASTROENTERITIS [None]
  - HAEMORRHAGE [None]
  - SYNCOPE [None]
